FAERS Safety Report 4991168-7 (Version None)
Quarter: 2006Q2

REPORT INFORMATION
  Report Type: 
  Country: None (occurrence: None)
  Receive Date: 20060428
  Receipt Date: 20060417
  Transmission Date: 20061013
  Serious: Yes (Hospitalization)
  Sender: FDA-Public Use
  Company Number: 2006043825

PATIENT
  Age: 50 Year
  Sex: Female
  Weight: 94.1 kg

DRUGS (1)
  1. AMLODIPINE [Suspect]
     Indication: HYPERTENSION
     Dosage: 5 MG (DAILY), ORAL
     Route: 048
     Dates: start: 20060302, end: 20060313

REACTIONS (3)
  - BLOOD PRESSURE INCREASED [None]
  - MENINGIOMA [None]
  - SYNCOPE [None]
